FAERS Safety Report 20990530 (Version 1)
Quarter: 2022Q2

REPORT INFORMATION
  Report Type: Other
  Country: FR (occurrence: FR)
  Receive Date: 20220622
  Receipt Date: 20220622
  Transmission Date: 20220721
  Serious: Yes (Hospitalization, Other)
  Sender: FDA-Public Use
  Company Number: FR-CELLTRION INC.-2022FR009385

PATIENT

DRUGS (8)
  1. TRASTUZUMAB [Suspect]
     Active Substance: TRASTUZUMAB
     Indication: Product used for unknown indication
     Dosage: 6 MILLIGRAM/KILOGRAM, Q3WK
     Route: 065
     Dates: start: 20190613
  2. PALBOCICLIB [Suspect]
     Active Substance: PALBOCICLIB
     Indication: Breast cancer metastatic
     Dosage: 125 MILLIGRAM
     Route: 065
     Dates: start: 20190522
  3. XGEVA [Suspect]
     Active Substance: DENOSUMAB
     Indication: Breast cancer metastatic
     Dosage: UNK
     Route: 065
  4. PACLITAXEL [Concomitant]
     Active Substance: PACLITAXEL
  5. EXEMESTANE [Concomitant]
     Active Substance: EXEMESTANE
     Dosage: 25 MILLIGRAM, QD
     Dates: start: 20190522
  6. RAMIPRIL [Concomitant]
     Active Substance: RAMIPRIL
     Indication: Hypertension
     Dosage: UNK
     Dates: start: 20190101
  7. PERTUZUMAB [Concomitant]
     Active Substance: PERTUZUMAB
     Dosage: 420 MILLIGRAM
     Dates: start: 20190613
  8. BISOPROLOL [Concomitant]
     Active Substance: BISOPROLOL
     Indication: Hypertension
     Dosage: UNK
     Dates: start: 20190101

REACTIONS (5)
  - Osteonecrosis of jaw [Recovered/Resolved]
  - Sinus disorder [Unknown]
  - Parosmia [Unknown]
  - Osteomyelitis [Unknown]
  - Off label use [Unknown]

NARRATIVE: CASE EVENT DATE: 20201005
